FAERS Safety Report 11009074 (Version 1)
Quarter: 2015Q2

REPORT INFORMATION
  Report Type: Spontaneous
  Country: US (occurrence: US)
  Receive Date: 20150410
  Receipt Date: 20150410
  Transmission Date: 20150821
  Serious: Yes (Other)
  Sender: FDA-Public Use
  Company Number: US-PFIZER INC-2015119303

PATIENT
  Sex: Female

DRUGS (4)
  1. ADVIL [Suspect]
     Active Substance: IBUPROFEN
     Dosage: UNK UNK, 1X/DAY
  2. ADVIL [Suspect]
     Active Substance: IBUPROFEN
     Dosage: UNK UNK, 2X/DAY
  3. ADVIL [Suspect]
     Active Substance: IBUPROFEN
     Dosage: UNK UNK, 1X/DAY
  4. ADVIL [Suspect]
     Active Substance: IBUPROFEN
     Dosage: UNK UNK, 2X/DAY

REACTIONS (1)
  - Blood urine present [Unknown]
